FAERS Safety Report 20665530 (Version 10)
Quarter: 2022Q2

REPORT INFORMATION
  Report Type: Report from Study
  Country: TR (occurrence: None)
  Receive Date: 20220402
  Receipt Date: 20220616
  Transmission Date: 20220721
  Serious: Yes (Death, Life-Threatening, Hospitalization)
  Sender: FDA-Public Use
  Company Number: TR-ROCHE-2868565

PATIENT
  Age: 57 Year
  Sex: Male
  Weight: 67 kg

DRUGS (10)
  1. ATEZOLIZUMAB [Suspect]
     Active Substance: ATEZOLIZUMAB
     Indication: Non-small cell lung cancer metastatic
     Dosage: ON 06/JUL/2021, 2:03 PM, HE RECEIVED MOST RECENT DOSE OF ATEZOLIZUMAB (1875 MG) PRIOR TO ONSET OF SE
     Route: 058
     Dates: start: 20210706
  2. FENTANYL [Concomitant]
     Active Substance: FENTANYL
     Indication: Bone pain
     Dosage: PATCH
     Dates: start: 201912
  3. COVID-19 VACCINE [Concomitant]
  4. TRAMADOL HYDROCHLORIDE [Concomitant]
     Active Substance: TRAMADOL HYDROCHLORIDE
     Indication: Pain in extremity
     Route: 048
     Dates: start: 202103
  5. XARELTO [Concomitant]
     Active Substance: RIVAROXABAN
     Indication: Deep vein thrombosis
     Route: 048
     Dates: start: 202105
  6. METRONIDAZOLE [Concomitant]
     Active Substance: METRONIDAZOLE
     Indication: Ischaemic stroke
     Route: 048
     Dates: start: 20210710, end: 20210713
  7. METRONIDAZOLE [Concomitant]
     Active Substance: METRONIDAZOLE
     Route: 048
     Dates: start: 20210709, end: 20210724
  8. NOVOSEF [Concomitant]
     Indication: Ischaemic stroke
     Route: 042
     Dates: start: 20210707, end: 20210714
  9. ENOXAPARIN SODIUM [Concomitant]
     Active Substance: ENOXAPARIN SODIUM
     Indication: Thrombosis
     Route: 058
     Dates: start: 202105, end: 20210708
  10. ENOXAPARIN SODIUM [Concomitant]
     Active Substance: ENOXAPARIN SODIUM
     Indication: Peripheral vein occlusion

REACTIONS (3)
  - Pneumonia aspiration [Fatal]
  - Ischaemic stroke [Recovering/Resolving]
  - Splenic infarction [Not Recovered/Not Resolved]

NARRATIVE: CASE EVENT DATE: 20210707
